FAERS Safety Report 9672267 (Version 2)
Quarter: 2013Q4

REPORT INFORMATION
  Report Type: Spontaneous
  Country: US (occurrence: US)
  Receive Date: 20131106
  Receipt Date: 20131121
  Transmission Date: 20140711
  Serious: Yes (Hospitalization)
  Sender: FDA-Public Use
  Company Number: US-ACTELION-A-US2013-90470

PATIENT
  Age: 41 Year
  Sex: Female

DRUGS (2)
  1. TRACLEER [Suspect]
     Indication: PULMONARY HYPERTENSION
     Dosage: 62.5 MG, BID
     Route: 048
     Dates: start: 20130802
  2. SILDENAFIL [Concomitant]

REACTIONS (7)
  - Cholecystitis [Not Recovered/Not Resolved]
  - Pulmonary embolism [Not Recovered/Not Resolved]
  - Abdominal pain [Not Recovered/Not Resolved]
  - Exercise tolerance decreased [Unknown]
  - Cough [Unknown]
  - Oedema [Unknown]
  - Nocturnal dyspnoea [Unknown]
